FAERS Safety Report 14961252 (Version 1)
Quarter: 2018Q2

REPORT INFORMATION
  Report Type: Report from Study
  Country: None (occurrence: BR)
  Receive Date: 20180601
  Receipt Date: 20180601
  Transmission Date: 20180711
  Serious: Yes (Other)
  Sender: FDA-Public Use
  Company Number: BR-ABBVIE-17K-020-2027770-00

PATIENT
  Sex: Male
  Weight: 97 kg

DRUGS (3)
  1. HUMIRA [Suspect]
     Active Substance: ADALIMUMAB
     Route: 058
     Dates: start: 2017, end: 20171024
  2. HUMIRA [Suspect]
     Active Substance: ADALIMUMAB
     Indication: PSORIATIC ARTHROPATHY
     Route: 058
     Dates: start: 2015, end: 201705
  3. HUMIRA [Suspect]
     Active Substance: ADALIMUMAB
     Route: 058
     Dates: end: 201801

REACTIONS (14)
  - Increased upper airway secretion [Recovered/Resolved]
  - X-ray abnormal [Recovered/Resolved]
  - Urine analysis [Recovered/Resolved]
  - Respiratory disorder [Unknown]
  - Pneumonia [Recovered/Resolved]
  - Pneumonia [Recovered/Resolved]
  - Pneumonia [Recovered/Resolved]
  - Fatigue [Recovered/Resolved]
  - Skin exfoliation [Recovered/Resolved]
  - Blood test abnormal [Recovered/Resolved]
  - Pyrexia [Recovered/Resolved]
  - Incorrect route of drug administration [Unknown]
  - Psoriasis [Recovered/Resolved]
  - Pulmonary oedema [Recovered/Resolved]

NARRATIVE: CASE EVENT DATE: 2015
